FAERS Safety Report 24630550 (Version 3)
Quarter: 2024Q4

REPORT INFORMATION
  Report Type: Report from Study
  Country: DE (occurrence: DE)
  Receive Date: 20241118
  Receipt Date: 20241202
  Transmission Date: 20250114
  Serious: Yes (Hospitalization, Other)
  Sender: BAYER HEALTHCARE PHARMACEUTICALS INC.
  Company Number: DE-BAYER-2024A161103

PATIENT
  Age: 49 Year
  Sex: Male

DRUGS (1)
  1. ADEMPAS [Suspect]
     Active Substance: RIOCIGUAT
     Indication: Pulmonary hypertension
     Dosage: 0.5 MG
     Dates: start: 20241031

REACTIONS (3)
  - Coma [Unknown]
  - Haemorrhage [None]
  - Hospitalisation [None]

NARRATIVE: CASE EVENT DATE: 20240101
